FAERS Safety Report 9206990 (Version 1)
Quarter: 2013Q2

REPORT INFORMATION
  Report Type: Spontaneous
  Country: BE (occurrence: BE)
  Receive Date: 20130403
  Receipt Date: 20130403
  Transmission Date: 20140414
  Serious: Yes (Death, Hospitalization)
  Sender: FDA-Public Use
  Company Number: BE-B.I. PHARMACEUTICALS,INC./RIDGEFIELD-2012-BL-00660BL

PATIENT
  Age: 85 Year
  Sex: Male
  Weight: 70 kg

DRUGS (6)
  1. PRADAXA [Suspect]
     Indication: ATRIAL FIBRILLATION
     Dosage: 220 NR
     Route: 048
     Dates: start: 20110517
  2. PRADAXA [Suspect]
     Dosage: 110 NR
     Route: 048
     Dates: end: 20110912
  3. CORDARONE [Concomitant]
     Indication: ATRIAL FIBRILLATION
     Dosage: 200 NR
     Route: 048
  4. TRITACE [Concomitant]
     Indication: HYPERTENSION
     Dosage: 10 NR
     Route: 048
  5. EMCONCOR [Concomitant]
     Indication: CARDIAC FAILURE
     Dosage: 1/2 2,5
     Route: 048
  6. FUROSEMIDE [Concomitant]
     Indication: CARDIAC FAILURE
     Dosage: 1/2 240
     Route: 048

REACTIONS (3)
  - Renal failure [Fatal]
  - Cardiac failure [Fatal]
  - Death [Fatal]
